FAERS Safety Report 8313586-1 (Version None)
Quarter: 2012Q2

REPORT INFORMATION
  Report Type: 
  Country: None (occurrence: None)
  Receive Date: 20120425
  Receipt Date: 20120425
  Transmission Date: 20120825
  Serious: Yes (Hospitalization, Other)
  Sender: FDA-Public Use
  Company Number: None

PATIENT
  Age: 89 Year
  Sex: Female
  Weight: 64.4108 kg

DRUGS (1)
  1. REQUIP [Suspect]
     Indication: RESTLESS LEGS SYNDROME
     Dosage: 0.25MG DAILY ORAL
     Route: 048
     Dates: start: 20120315, end: 20120322

REACTIONS (13)
  - DECREASED APPETITE [None]
  - CONFUSIONAL STATE [None]
  - ASTHENIA [None]
  - SYNCOPE [None]
  - MOVEMENT DISORDER [None]
  - DEPRESSION [None]
  - NAUSEA [None]
  - MEMORY IMPAIRMENT [None]
  - FALL [None]
  - HYPERSOMNIA [None]
  - NERVOUSNESS [None]
  - MENTAL DISORDER [None]
  - PERSONALITY DISORDER [None]
